FAERS Safety Report 21308876 (Version 1)
Quarter: 2022Q3

REPORT INFORMATION
  Report Type: Report from Study
  Country: US (occurrence: US)
  Receive Date: 20220908
  Receipt Date: 20220908
  Transmission Date: 20221026
  Serious: Yes (Hospitalization)
  Sender: FDA-Public Use
  Company Number: US-ZOGENIX INTERNATIONAL LIMITED-2022ZX000963

PATIENT
  Age: 1 Year
  Sex: Female

DRUGS (1)
  1. FINTEPLA [Suspect]
     Active Substance: FENFLURAMINE
     Indication: Severe myoclonic epilepsy of infancy
     Dosage: 2.2MG/ML
     Route: 048

REACTIONS (3)
  - Seizure [Unknown]
  - Seizure cluster [Unknown]
  - Off label use [Unknown]

NARRATIVE: CASE EVENT DATE: 20220728
